FAERS Safety Report 22298737 (Version 1)
Quarter: 2023Q2

REPORT INFORMATION
  Report Type: Report from Study
  Country: FR (occurrence: None)
  Receive Date: 20230509
  Receipt Date: 20230509
  Transmission Date: 20230722
  Serious: Yes (Other)
  Sender: FDA-Public Use
  Company Number: FR-Merck Healthcare KGaA-9398877

PATIENT
  Age: 4 Year
  Sex: Male
  Weight: 12 kg

DRUGS (2)
  1. SAIZEN [Suspect]
     Active Substance: SOMATROPIN
     Indication: Growth retardation
     Route: 058
     Dates: start: 20230424
  2. SAIZEN [Suspect]
     Active Substance: SOMATROPIN
     Indication: Small for dates baby

REACTIONS (7)
  - Ketoacidosis [Unknown]
  - Abdominal pain upper [Unknown]
  - Fatigue [Unknown]
  - Injection site pain [Recovered/Resolved]
  - Crying [Recovered/Resolved]
  - Tension [Recovered/Resolved]
  - Screaming [Unknown]

NARRATIVE: CASE EVENT DATE: 20230424
